FAERS Safety Report 5903208-9 (Version None)
Quarter: 2008Q3

REPORT INFORMATION
  Report Type: 
  Country: None (occurrence: None)
  Receive Date: 20080930
  Receipt Date: 20080919
  Transmission Date: 20090109
  Serious: Yes (Hospitalization)
  Sender: FDA-Public Use
  Company Number: IT-BRISTOL-MYERS SQUIBB COMPANY-14237077

PATIENT
  Age: 88 Year
  Sex: Male

DRUGS (6)
  1. ERBITUX [Suspect]
     Indication: LARYNGEAL NEOPLASM
     Dosage: MOST RECENT INFUSION: 16-MAY-2008
     Route: 042
     Dates: start: 20080411, end: 20080516
  2. RADIATION THERAPY [Suspect]
     Indication: TONGUE NEOPLASM
     Dosage: I DOSAGE FORM-5800 CGY
     Route: 042
     Dates: start: 20070407, end: 20080519
  3. FARGANESSE [Concomitant]
     Dosage: 1 DOSAGE FORM = 50MG/2ML
  4. SOLDESAM [Concomitant]
     Dosage: 1 DOSAGE FORM = 4MG/ML
  5. ZOFRAN [Concomitant]
  6. ZANTAC [Concomitant]
     Dosage: 1 DOSAGE FORM = 50MG/ML

REACTIONS (3)
  - ERYTHEMA [None]
  - GENERALISED OEDEMA [None]
  - PRURITUS [None]
